FAERS Safety Report 11756636 (Version 2)
Quarter: 2016Q1

REPORT INFORMATION
  Report Type: Report from Study
  Country: CA (occurrence: CA)
  Receive Date: 20151120
  Receipt Date: 20160225
  Transmission Date: 20160525
  Serious: Yes (Other)
  Sender: FDA-Public Use
  Company Number: CA-ROCHE-1663464

PATIENT

DRUGS (1)
  1. BEVACIZUMAB [Suspect]
     Active Substance: BEVACIZUMAB
     Indication: GLIOBLASTOMA
     Route: 065

REACTIONS (10)
  - Anaemia [Unknown]
  - Hypertension [Unknown]
  - Leukopenia [Unknown]
  - Cerebral haemorrhage [Unknown]
  - Deep vein thrombosis [Unknown]
  - Fatigue [Unknown]
  - Neutropenia [Unknown]
  - Impaired healing [Unknown]
  - Seizure [Unknown]
  - Thrombocytopenia [Unknown]
